FAERS Safety Report 16253886 (Version 1)
Quarter: 2019Q2

REPORT INFORMATION
  Report Type: Report from Study
  Country: FR (occurrence: FR)
  Receive Date: 20190430
  Receipt Date: 20190430
  Transmission Date: 20190711
  Serious: Yes (Life-Threatening, Hospitalization)
  Sender: FDA-Public Use
  Company Number: FR-BIOVITRUM-2019FR0868

PATIENT
  Age: 82 Year
  Sex: Female

DRUGS (1)
  1. KINERET [Suspect]
     Active Substance: ANAKINRA
     Indication: TEMPORAL ARTERITIS
     Route: 058
     Dates: start: 20190307, end: 20190410

REACTIONS (1)
  - Agranulocytosis [Unknown]

NARRATIVE: CASE EVENT DATE: 20190409
